FAERS Safety Report 21472000 (Version 14)
Quarter: 2024Q4

REPORT INFORMATION
  Report Type: Spontaneous
  Country: US (occurrence: US)
  Receive Date: 20221018
  Receipt Date: 20241008
  Transmission Date: 20250115
  Serious: Yes (Disabling, Other)
  Sender: PFIZER
  Company Number: US-PFIZER INC-PV202200084602

PATIENT
  Age: 75 Year
  Sex: Female

DRUGS (1)
  1. IBRANCE [Suspect]
     Active Substance: PALBOCICLIB
     Indication: Breast cancer female
     Dosage: 125 MG DAILY, DAYS 1-21 EVERY 28 DAYS
     Route: 048

REACTIONS (9)
  - Depression [Unknown]
  - Memory impairment [Unknown]
  - Gait inability [Unknown]
  - Dysgraphia [Unknown]
  - Product dose omission in error [Unknown]
  - Neoplasm progression [Unknown]
  - Mobility decreased [Unknown]
  - Limb discomfort [Unknown]
  - Therapeutic response unexpected [Unknown]
